FAERS Safety Report 13288886 (Version 1)
Quarter: 2017Q1

REPORT INFORMATION
  Report Type: Spontaneous
  Country: US (occurrence: US)
  Receive Date: 20170302
  Receipt Date: 20170302
  Transmission Date: 20170428
  Serious: Yes (Other)
  Sender: FDA-Public Use
  Company Number: US-BRISTOL-MYERS SQUIBB COMPANY-BMS-2017-015986

PATIENT
  Age: 52 Year
  Sex: Male
  Weight: 99.77 kg

DRUGS (2)
  1. OPDIVO [Suspect]
     Active Substance: NIVOLUMAB
     Indication: MALIGNANT MELANOMA
     Dosage: UNK
     Route: 065
     Dates: start: 201512, end: 20160606
  2. YERVOY [Suspect]
     Active Substance: IPILIMUMAB
     Indication: MALIGNANT MELANOMA
     Dosage: UNK
     Route: 065
     Dates: start: 201512, end: 20160606

REACTIONS (5)
  - Blood creatinine increased [Unknown]
  - Malaise [Unknown]
  - Vomiting [Unknown]
  - Adrenal insufficiency [Unknown]
  - Hypertension [Unknown]
